FAERS Safety Report 21542461 (Version 1)
Quarter: 2022Q4

REPORT INFORMATION
  Report Type: Spontaneous
  Country: US (occurrence: US)
  Receive Date: 20221102
  Receipt Date: 20221102
  Transmission Date: 20230113
  Serious: Yes (Hospitalization, Other)
  Sender: FDA-Public Use
  Company Number: US-BRISTOL-MYERS SQUIBB COMPANY-2022-129147

PATIENT
  Sex: Female

DRUGS (1)
  1. THALOMID [Suspect]
     Active Substance: THALIDOMIDE
     Indication: Internal haemorrhage
     Dosage: DOSE : UNAVAILABLE;     FREQ : UNAVAILABLE
     Route: 065

REACTIONS (4)
  - Hepatic failure [Unknown]
  - Myocardial infarction [Unknown]
  - Off label use [Unknown]
  - Multiple organ dysfunction syndrome [Unknown]
